FAERS Safety Report 9270207 (Version 1)
Quarter: 2013Q2

REPORT INFORMATION
  Report Type: Spontaneous
  Country: JP (occurrence: JP)
  Receive Date: 20130503
  Receipt Date: 20130503
  Transmission Date: 20140414
  Serious: Yes (Other)
  Sender: FDA-Public Use
  Company Number: JP-GLAXOSMITHKLINE-B0887193A

PATIENT
  Age: 85 Year
  Sex: Male

DRUGS (4)
  1. REQUIP [Suspect]
     Indication: PARKINSON^S DISEASE
     Dosage: 2MG PER DAY
     Route: 048
     Dates: start: 20130412, end: 20130413
  2. MENESIT [Concomitant]
     Indication: PARKINSON^S DISEASE
     Dosage: 100MG THREE TIMES PER DAY
     Route: 048
     Dates: start: 20111220
  3. TRERIEF [Concomitant]
     Indication: PARKINSON^S DISEASE
     Dosage: 25MG PER DAY
     Route: 048
     Dates: start: 20120724
  4. MAGMITT [Concomitant]
     Indication: CONSTIPATION
     Dosage: 330MG THREE TIMES PER DAY
     Route: 048
     Dates: start: 20120424

REACTIONS (5)
  - Loss of consciousness [Recovered/Resolved]
  - Altered state of consciousness [Recovered/Resolved]
  - Photopsia [Recovered/Resolved]
  - Incontinence [Recovered/Resolved]
  - Somnolence [Recovered/Resolved]
